FAERS Safety Report 20722037 (Version 1)
Quarter: 2022Q2

REPORT INFORMATION
  Report Type: Spontaneous
  Country: DE (occurrence: DE)
  Receive Date: 20220418
  Receipt Date: 20220418
  Transmission Date: 20220720
  Serious: Yes (Other)
  Sender: FDA-Public Use
  Company Number: DE-JNJFOC-20220409314

PATIENT
  Age: 46 Year
  Sex: Female

DRUGS (1)
  1. TOPAMAX [Suspect]
     Active Substance: TOPIRAMATE
     Indication: Migraine prophylaxis
     Route: 048

REACTIONS (5)
  - Bradycardia [Unknown]
  - Loss of consciousness [Unknown]
  - Psychotic disorder [Unknown]
  - Alien limb syndrome [Unknown]
  - Wrong technique in product usage process [Unknown]
